FAERS Safety Report 16246197 (Version 5)
Quarter: 2019Q2

REPORT INFORMATION
  Report Type: Report from Study
  Country: RU (occurrence: RU)
  Receive Date: 20190426
  Receipt Date: 20190528
  Transmission Date: 20190711
  Serious: Yes (Life-Threatening, Hospitalization)
  Sender: FDA-Public Use
  Company Number: RU-REGENERON PHARMACEUTICALS, INC.-2019-29355

PATIENT

DRUGS (2)
  1. CEMIPLIMAB [Suspect]
     Active Substance: CEMIPLIMAB
     Dosage: 350 MG, Q3W
     Route: 042
     Dates: start: 20190506
  2. CEMIPLIMAB [Suspect]
     Active Substance: CEMIPLIMAB
     Indication: CERVIX CARCINOMA
     Dosage: 350 MG, Q3W
     Route: 042
     Dates: start: 20190206, end: 20190227

REACTIONS (1)
  - Pericardial effusion [Recovered/Resolved with Sequelae]

NARRATIVE: CASE EVENT DATE: 20190320
